FAERS Safety Report 6814311-3 (Version None)
Quarter: 2010Q3

REPORT INFORMATION
  Report Type: 
  Country: None (occurrence: None)
  Receive Date: 20100702
  Receipt Date: 20100621
  Transmission Date: 20110219
  Serious: Yes (Hospitalization)
  Sender: FDA-Public Use
  Company Number: US-SANOFI-AVENTIS-2010SA036151

PATIENT
  Age: 7 Year
  Sex: Male

DRUGS (3)
  1. LOVENOX [Suspect]
     Route: 065
     Dates: start: 20100201, end: 20100601
  2. LOVENOX [Suspect]
     Route: 065
     Dates: start: 20100601, end: 20100601
  3. LOVENOX [Suspect]
     Route: 065
     Dates: start: 20100601

REACTIONS (3)
  - ANTICOAGULATION DRUG LEVEL ABOVE THERAPEUTIC [None]
  - ANTICOAGULATION DRUG LEVEL BELOW THERAPEUTIC [None]
  - HEADACHE [None]
